FAERS Safety Report 24030294 (Version 2)
Quarter: 2024Q3

REPORT INFORMATION
  Report Type: Spontaneous
  Country: US (occurrence: US)
  Receive Date: 20240628
  Receipt Date: 20240709
  Transmission Date: 20241016
  Serious: Yes (Other)
  Sender: BAYER
  Company Number: US-BAYER-2024A092502

PATIENT
  Age: 56 Year
  Sex: Female

DRUGS (2)
  1. ALKA-SELTZER PLUS COLD AND COUGH FORMULA [Suspect]
     Active Substance: ACETAMINOPHEN\CHLORPHENIRAMINE\DEXTROMETHORPHAN\PHENYLEPHRINE
     Indication: Nasopharyngitis
     Dosage: UNK
     Route: 048
     Dates: start: 20240626, end: 20240626
  2. ALKA-SELTZER PLUS COLD AND COUGH FORMULA [Suspect]
     Active Substance: ACETAMINOPHEN\CHLORPHENIRAMINE\DEXTROMETHORPHAN\PHENYLEPHRINE
     Indication: Influenza

REACTIONS (3)
  - Choking [Recovering/Resolving]
  - Product physical issue [None]
  - Product solubility abnormal [None]

NARRATIVE: CASE EVENT DATE: 20240626
